FAERS Safety Report 12939505 (Version 1)
Quarter: 2016Q4

REPORT INFORMATION
  Report Type: Spontaneous
  Country: US (occurrence: US)
  Receive Date: 20161114
  Receipt Date: 20161114
  Transmission Date: 20170207
  Serious: Yes (Other)
  Sender: FDA-Public Use
  Company Number: None

PATIENT
  Age: 58 Year
  Sex: Female

DRUGS (1)
  1. MIRAPEX [Suspect]
     Active Substance: PRAMIPEXOLE DIHYDROCHLORIDE
     Indication: RESTLESS LEGS SYNDROME
     Route: 048
     Dates: start: 20061114, end: 20161114

REACTIONS (4)
  - Hallucination [None]
  - Obsessive thoughts [None]
  - Memory impairment [None]
  - Sleep disorder [None]

NARRATIVE: CASE EVENT DATE: 20161113
